FAERS Safety Report 19707827 (Version 1)
Quarter: 2021Q3

REPORT INFORMATION
  Report Type: Spontaneous
  Country: US (occurrence: US)
  Receive Date: 20210816
  Receipt Date: 20210816
  Transmission Date: 20211014
  Serious: Yes (Hospitalization)
  Sender: FDA-Public Use
  Company Number: None

PATIENT
  Age: 36 Year
  Sex: Female

DRUGS (13)
  1. PROCHLORPER [Concomitant]
  2. XENAZINE [Concomitant]
     Active Substance: TETRABENAZINE
  3. AIMOVIG [Concomitant]
     Active Substance: ERENUMAB-AOOE
  4. FLONASE ALGY [Concomitant]
  5. LEVOTHYROXIN [Concomitant]
     Active Substance: LEVOTHYROXINE
  6. LINZESS [Concomitant]
     Active Substance: LINACLOTIDE
  7. NUVARING [Concomitant]
     Active Substance: ETHINYL ESTRADIOL\ETONOGESTREL
  8. PLAQUENIL [Concomitant]
     Active Substance: HYDROXYCHLOROQUINE SULFATE
  9. OCREVUS [Suspect]
     Active Substance: OCRELIZUMAB
     Indication: MULTIPLE SCLEROSIS
     Dosage: ?          OTHER FREQUENCY:EVERY 6 MONTHS; IV INFUSION?
     Route: 042
     Dates: start: 20200528
  10. BOTOX [Concomitant]
     Active Substance: ONABOTULINUMTOXINA
  11. CYMBALTA [Concomitant]
     Active Substance: DULOXETINE HYDROCHLORIDE
  12. MAXALT [Concomitant]
     Active Substance: RIZATRIPTAN BENZOATE
  13. VITAMIN D3 [Concomitant]
     Active Substance: CHOLECALCIFEROL

REACTIONS (2)
  - Withdrawal of life support [None]
  - COVID-19 [None]

NARRATIVE: CASE EVENT DATE: 20210512
